FAERS Safety Report 11777436 (Version 1)
Quarter: 2015Q4

REPORT INFORMATION
  Report Type: Spontaneous
  Country: NL (occurrence: NL)
  Receive Date: 20151125
  Receipt Date: 20151125
  Transmission Date: 20160304
  Serious: Yes (Other)
  Sender: FDA-Public Use
  Company Number: NL-TEVA-611743ISR

PATIENT
  Age: 54 Year
  Sex: Male

DRUGS (3)
  1. CISPLATIN. [Suspect]
     Active Substance: CISPLATIN
     Indication: SEMINOMA
  2. BLEOMYCIN [Suspect]
     Active Substance: BLEOMYCIN SULFATE
  3. ETOPOSIDE. [Suspect]
     Active Substance: ETOPOSIDE

REACTIONS (2)
  - Pulmonary embolism [Unknown]
  - Peripheral artery thrombosis [Unknown]
